FAERS Safety Report 7378297-8 (Version None)
Quarter: 2011Q1

REPORT INFORMATION
  Report Type: 
  Country: None (occurrence: None)
  Receive Date: 20110317
  Receipt Date: 20110304
  Transmission Date: 20110831
  Serious: Yes (Death)
  Sender: FDA-Public Use
  Company Number: UTC-005552

PATIENT
  Age: 60 Year
  Sex: Female
  Weight: 72.7 kg

DRUGS (1)
  1. REMODULIN [Suspect]
     Indication: PULMONARY ARTERIAL HYPERTENSION
     Dosage: 82.08 UG/KG (0.057 UG/KG,1 IN 1 MIN),INTRAVENOUS
     Route: 042
     Dates: start: 20061219

REACTIONS (1)
  - DEATH [None]
